FAERS Safety Report 15665414 (Version 17)
Quarter: 2021Q3

REPORT INFORMATION
  Report Type: Spontaneous
  Country: CA (occurrence: CA)
  Receive Date: 20181128
  Receipt Date: 20210718
  Transmission Date: 20211014
  Serious: Yes (Hospitalization, Other)
  Sender: FDA-Public Use
  Company Number: CA-ABBVIE-18K-028-2570644-00

PATIENT
  Age: 78 Year
  Sex: Female

DRUGS (69)
  1. HUMIRA [Suspect]
     Active Substance: ADALIMUMAB
     Indication: JOINT STIFFNESS
  2. ARAVA [Suspect]
     Active Substance: LEFLUNOMIDE
     Indication: JOINT STIFFNESS
  3. ENBREL [Suspect]
     Active Substance: ETANERCEPT
     Indication: JOINT STIFFNESS
  4. MOTRIN [Suspect]
     Active Substance: IBUPROFEN
     Indication: PAIN
  5. SODIUM AUROTHIOMALATE [Suspect]
     Active Substance: GOLD SODIUM THIOMALATE
     Indication: RHEUMATOID ARTHRITIS
     Route: 051
  6. SULFAMETHOXAZOLE [Suspect]
     Active Substance: SULFAMETHOXAZOLE
     Indication: RHEUMATOID ARTHRITIS
     Route: 065
  7. HUMIRA [Suspect]
     Active Substance: ADALIMUMAB
     Indication: MOBILITY DECREASED
  8. ASPIRIN. [Suspect]
     Active Substance: ASPIRIN
     Indication: PAIN
  9. ASPIRIN. [Suspect]
     Active Substance: ASPIRIN
     Indication: JOINT STIFFNESS
  10. NAPROXEN. [Suspect]
     Active Substance: NAPROXEN
     Indication: RHEUMATOID ARTHRITIS
     Route: 065
  11. HYDROXYCHLOROQUINE SULFATE. [Suspect]
     Active Substance: HYDROXYCHLOROQUINE SULFATE
     Indication: RHEUMATOID ARTHRITIS
     Route: 065
  12. DICLOFENAC [Suspect]
     Active Substance: DICLOFENAC
     Indication: PAIN
  13. HUMIRA [Suspect]
     Active Substance: ADALIMUMAB
     Indication: PAIN
  14. MOTRIN [Suspect]
     Active Substance: IBUPROFEN
     Indication: RHEUMATOID ARTHRITIS
     Route: 065
  15. MOTRIN [Suspect]
     Active Substance: IBUPROFEN
     Indication: JOINT STIFFNESS
  16. NAPROSYN [Suspect]
     Active Substance: NAPROXEN
     Indication: PAIN
  17. APO ASA [Suspect]
     Active Substance: ASPIRIN
     Indication: RHEUMATOID ARTHRITIS
     Route: 065
  18. VITAMIN C [Suspect]
     Active Substance: ASCORBIC ACID
     Indication: RHEUMATOID ARTHRITIS
     Route: 065
  19. ACETYLSALICYLIC ACID W/CLOPIDOGREL [Suspect]
     Active Substance: ASPIRIN\CLOPIDOGREL
     Indication: RHEUMATOID ARTHRITIS
     Route: 065
  20. TRAMADOL. [Suspect]
     Active Substance: TRAMADOL
     Indication: PRODUCT USED FOR UNKNOWN INDICATION
     Route: 065
  21. ARAVA [Suspect]
     Active Substance: LEFLUNOMIDE
     Indication: RHEUMATOID ARTHRITIS
     Route: 048
  22. METHOTREXATE. [Suspect]
     Active Substance: METHOTREXATE
     Indication: RHEUMATOID ARTHRITIS
     Route: 065
  23. PLAQUENIL [Suspect]
     Active Substance: HYDROXYCHLOROQUINE SULFATE
     Indication: RHEUMATOID ARTHRITIS
     Route: 048
  24. SODIUM AUROTHIOMALATE [Suspect]
     Active Substance: GOLD SODIUM THIOMALATE
     Route: 051
  25. ASCORBIC ACID. [Suspect]
     Active Substance: ASCORBIC ACID
     Indication: RHEUMATOID ARTHRITIS
     Route: 065
  26. IBUPROFEN. [Suspect]
     Active Substance: IBUPROFEN
     Indication: RHEUMATOID ARTHRITIS
     Route: 048
  27. ARAVA [Suspect]
     Active Substance: LEFLUNOMIDE
     Indication: MOBILITY DECREASED
  28. METHOTREXATE. [Suspect]
     Active Substance: METHOTREXATE
     Indication: JOINT STIFFNESS
  29. VOLTAREN [Suspect]
     Active Substance: DICLOFENAC SODIUM
     Indication: RHEUMATOID ARTHRITIS
     Route: 065
  30. GOLD SODIUM THIOMALATE [Suspect]
     Active Substance: GOLD SODIUM THIOMALATE
     Indication: RHEUMATOID ARTHRITIS
     Route: 065
  31. GOLD SODIUM THIOMALATE [Suspect]
     Active Substance: GOLD SODIUM THIOMALATE
     Indication: JOINT STIFFNESS
  32. ASPIRIN. [Suspect]
     Active Substance: ASPIRIN
     Indication: MOBILITY DECREASED
  33. HYDROXYCHLOROQUINE [Suspect]
     Active Substance: HYDROXYCHLOROQUINE
     Indication: RHEUMATOID ARTHRITIS
     Route: 048
  34. HYDROXYCHLOROQUINE [Suspect]
     Active Substance: HYDROXYCHLOROQUINE
     Indication: PAIN
  35. SULFAMETHOXAZOLE AND TRIMETHOPRIM [Suspect]
     Active Substance: SULFAMETHOXAZOLE\TRIMETHOPRIM
     Indication: RHEUMATOID ARTHRITIS
     Route: 065
  36. METHOTREXATE SODIUM. [Suspect]
     Active Substance: METHOTREXATE SODIUM
     Indication: RHEUMATOID ARTHRITIS
     Route: 065
  37. APO DICLOFENAC OPHTHALMIC [Suspect]
     Active Substance: DICLOFENAC SODIUM
     Indication: RHEUMATOID ARTHRITIS
     Route: 061
  38. ULTRAM [Suspect]
     Active Substance: TRAMADOL HYDROCHLORIDE
     Indication: PRODUCT USED FOR UNKNOWN INDICATION
     Route: 048
  39. TRAMADOL HYDROCHLORIDE. [Concomitant]
     Active Substance: TRAMADOL HYDROCHLORIDE
     Indication: RHEUMATOID ARTHRITIS
     Route: 065
  40. METHOTREXATE. [Suspect]
     Active Substance: METHOTREXATE
     Indication: PAIN
  41. NAPROSYN [Suspect]
     Active Substance: NAPROXEN
     Indication: JOINT STIFFNESS
  42. GOLD SODIUM THIOMALATE [Suspect]
     Active Substance: GOLD SODIUM THIOMALATE
     Indication: PAIN
  43. ASPIRIN. [Suspect]
     Active Substance: ASPIRIN
     Indication: RHEUMATOID ARTHRITIS
     Route: 048
  44. DICLOFENAC [Suspect]
     Active Substance: DICLOFENAC
     Indication: JOINT STIFFNESS
  45. NAPROXEN SODIUM. [Suspect]
     Active Substance: NAPROXEN SODIUM
     Indication: RHEUMATOID ARTHRITIS
     Route: 065
  46. GOLD [Suspect]
     Active Substance: GOLD
     Indication: RHEUMATOID ARTHRITIS
     Route: 058
  47. GOLD [Suspect]
     Active Substance: GOLD
     Indication: JOINT STIFFNESS
  48. ARAVA [Suspect]
     Active Substance: LEFLUNOMIDE
     Indication: PAIN
  49. DICLOFENAC POTASSIUM. [Suspect]
     Active Substance: DICLOFENAC POTASSIUM
     Indication: RHEUMATOID ARTHRITIS
     Route: 065
  50. ENBREL [Suspect]
     Active Substance: ETANERCEPT
     Indication: RHEUMATOID ARTHRITIS
     Route: 058
  51. MOTRIN [Suspect]
     Active Substance: IBUPROFEN
     Indication: MOBILITY DECREASED
  52. NAPROSYN [Suspect]
     Active Substance: NAPROXEN
     Indication: RHEUMATOID ARTHRITIS
     Route: 065
  53. NAPROSYN [Suspect]
     Active Substance: NAPROXEN
     Indication: MOBILITY DECREASED
  54. TRIMETHOPRIM. [Suspect]
     Active Substance: TRIMETHOPRIM
     Indication: RHEUMATOID ARTHRITIS
     Route: 065
  55. ACETYLSALICYLIC ACID [Suspect]
     Active Substance: ASPIRIN
     Indication: RHEUMATOID ARTHRITIS
     Route: 065
  56. CLOPIDOGREL [Suspect]
     Active Substance: CLOPIDOGREL BISULFATE
     Indication: RHEUMATOID ARTHRITIS
     Route: 065
  57. APO?DICLOFENAC [Suspect]
     Active Substance: DICLOFENAC
     Indication: RHEUMATOID ARTHRITIS
     Route: 061
  58. HUMIRA [Suspect]
     Active Substance: ADALIMUMAB
     Indication: RHEUMATOID ARTHRITIS
     Route: 058
  59. ENBREL [Suspect]
     Active Substance: ETANERCEPT
     Indication: PAIN
  60. ENBREL [Suspect]
     Active Substance: ETANERCEPT
     Indication: MOBILITY DECREASED
  61. METHOTREXATE. [Suspect]
     Active Substance: METHOTREXATE
     Indication: MOBILITY DECREASED
  62. GOLD SODIUM THIOMALATE [Suspect]
     Active Substance: GOLD SODIUM THIOMALATE
     Indication: MOBILITY DECREASED
  63. DICLOFENAC [Suspect]
     Active Substance: DICLOFENAC
     Indication: RHEUMATOID ARTHRITIS
     Route: 065
  64. DICLOFENAC [Suspect]
     Active Substance: DICLOFENAC
     Indication: MOBILITY DECREASED
  65. HYDROXYCHLOROQUINE [Suspect]
     Active Substance: HYDROXYCHLOROQUINE
     Indication: MOBILITY DECREASED
  66. HYDROXYCHLOROQUINE [Suspect]
     Active Substance: HYDROXYCHLOROQUINE
     Indication: JOINT STIFFNESS
  67. APO HYDROXYCHLOROQUINE [Suspect]
     Active Substance: HYDROXYCHLOROQUINE
     Indication: RHEUMATOID ARTHRITIS
     Route: 065
  68. GOLD [Suspect]
     Active Substance: GOLD
     Indication: PAIN
  69. GOLD [Suspect]
     Active Substance: GOLD
     Indication: MOBILITY DECREASED

REACTIONS (14)
  - Nausea [Recovered/Resolved]
  - Adverse reaction [Recovered/Resolved]
  - Headache [Recovered/Resolved]
  - Drug hypersensitivity [Recovered/Resolved]
  - Abdominal discomfort [Recovered/Resolved]
  - Gastrointestinal pain [Recovered/Resolved]
  - Musculoskeletal disorder [Recovered/Resolved]
  - Weight decreased [Recovered/Resolved]
  - Hypophagia [Recovered/Resolved]
  - Abdominal pain upper [Recovered/Resolved]
  - Vomiting [Recovered/Resolved]
  - Gastrointestinal disorder [Recovered/Resolved]
  - Pharyngitis [Recovered/Resolved]
  - Arthropathy [Recovered/Resolved]
